FAERS Safety Report 5166887-2 (Version None)
Quarter: 2006Q4

REPORT INFORMATION
  Report Type: 
  Country: None (occurrence: None)
  Receive Date: 20061207
  Receipt Date: 20061201
  Transmission Date: 20070319
  Serious: Yes (Death)
  Sender: FDA-Public Use
  Company Number: US-JNJFOC-20030702408

PATIENT
  Sex: Female

DRUGS (4)
  1. INFLIXIMAB RECOMBINANT [Suspect]
     Indication: RHEUMATOID ARTHRITIS
     Route: 042
     Dates: start: 20010719, end: 20011023
  2. MOTRIN [Concomitant]
     Route: 048
  3. METHOTREXATE [Concomitant]
     Route: 065
  4. PREDNISONE TAB [Concomitant]
     Route: 048

REACTIONS (1)
  - RENAL FAILURE [None]
